FAERS Safety Report 9398436 (Version 1)
Quarter: 2013Q3

REPORT INFORMATION
  Report Type: Spontaneous
  Country: US (occurrence: US)
  Receive Date: 20130712
  Receipt Date: 20130712
  Transmission Date: 20140515
  Serious: Yes (Other)
  Sender: FDA-Public Use
  Company Number: US-PFIZER INC-2013204535

PATIENT
  Age: 45 Year
  Sex: Female
  Weight: 86.17 kg

DRUGS (4)
  1. PRISTIQ [Suspect]
     Indication: PREMENSTRUAL SYNDROME
     Dosage: 50 MG, UNK
     Dates: start: 2011
  2. PRISTIQ [Suspect]
     Indication: DEPRESSION
     Dosage: 100 MG, UNK
  3. LEVOTHYROXINE [Concomitant]
     Indication: THYROID DISORDER
     Dosage: 75 UG, 1X/DAY
  4. LIOTHYRONINE SODIUM [Concomitant]
     Indication: THYROID DISORDER
     Dosage: 5 UG, 1X/DAY

REACTIONS (11)
  - Drug dependence [Unknown]
  - Weight increased [Unknown]
  - Thinking abnormal [Unknown]
  - Dizziness [Unknown]
  - Fall [Unknown]
  - Apathy [Unknown]
  - Headache [Unknown]
  - Fatigue [Unknown]
  - Crying [Unknown]
  - Insomnia [Unknown]
  - Off label use [Unknown]
